FAERS Safety Report 21634110 (Version 1)
Quarter: 2022Q4

REPORT INFORMATION
  Report Type: Spontaneous
  Country: GB (occurrence: GB)
  Receive Date: 20221123
  Receipt Date: 20221123
  Transmission Date: 20230113
  Serious: Yes (Life-Threatening)
  Sender: FDA-Public Use
  Company Number: GB-MHRA-MED-202211172133166700-YBCKZ

PATIENT
  Sex: Female

DRUGS (5)
  1. METRONIDAZOLE [Suspect]
     Active Substance: METRONIDAZOLE
     Indication: Surgery
     Dosage: 500 MG, DOSAGE FORM: INJECTION
     Route: 065
     Dates: start: 20221117, end: 20221117
  2. SODIUM CHLORIDE [Suspect]
     Active Substance: SODIUM CHLORIDE
     Indication: Medication dilution
     Dosage: 500ML TO DILUTE OXYTOCIN
     Route: 065
     Dates: start: 20221117, end: 20221117
  3. OXYTOCIN [Suspect]
     Active Substance: OXYTOCIN
     Indication: Caesarean section
     Dosage: 40 UNITS DILUTED IN 500ML 0.9% NACL
     Route: 065
     Dates: start: 20221117, end: 20221117
  4. OXYTOCIN [Suspect]
     Active Substance: OXYTOCIN
     Dosage: 5 UNITS STAT
     Route: 065
     Dates: start: 20221117, end: 20221117
  5. CEFUROXIME [Suspect]
     Active Substance: CEFUROXIME
     Indication: Surgery
     Dosage: 1.5 G
     Route: 065
     Dates: start: 20221117, end: 20221117

REACTIONS (2)
  - Hypotension [Recovering/Resolving]
  - Exposure during pregnancy [Unknown]

NARRATIVE: CASE EVENT DATE: 20221117
